FAERS Safety Report 22287313 (Version 1)
Quarter: 2023Q2

REPORT INFORMATION
  Report Type: Spontaneous
  Country: MX (occurrence: MX)
  Receive Date: 20230505
  Receipt Date: 20230505
  Transmission Date: 20230722
  Serious: Yes (Death)
  Sender: FDA-Public Use
  Company Number: MX-SUN PHARMACEUTICAL INDUSTRIES LTD-2023R1-387375

PATIENT
  Age: 8 Month
  Sex: Male

DRUGS (3)
  1. VINCRISTINE [Suspect]
     Active Substance: VINCRISTINE
     Indication: Rhabdoid tumour
     Dosage: 0.05 MILLIGRAM/KILOGRAM, QD
     Route: 065
  2. IRINOTECAN [Suspect]
     Active Substance: IRINOTECAN
     Indication: Rhabdoid tumour
     Dosage: UNK
     Route: 065
  3. TEMOZOLOMIDE [Suspect]
     Active Substance: TEMOZOLOMIDE
     Indication: Rhabdoid tumour
     Dosage: UNK
     Route: 065

REACTIONS (1)
  - Drug ineffective [Fatal]
